FAERS Safety Report 6983268 (Version 2)
Quarter: 2014Q2

REPORT INFORMATION
  Report Type: Spontaneous
  Country: CA (occurrence: CA)
  Receive Date: 20090430
  Receipt Date: 20140402
  Transmission Date: 20141212
  Serious: Yes (Hospitalization, Other)
  Sender: FDA-Public Use
  Company Number: PHHY2009CA15962

PATIENT
  Age: 6 Year
  Sex: Male

DRUGS (12)
  1. CICLOSPORIN [Suspect]
     Indication: STEM CELL TRANSPLANT
  2. CICLOSPORIN [Suspect]
     Indication: PROPHYLAXIS AGAINST GRAFT VERSUS HOST DISEASE
     Dosage: 65 MG/M2, Q12H
     Route: 042
  3. CICLOSPORIN [Suspect]
     Dosage: 10 MG/KG, REINITIATED ON DAY 9
     Route: 042
  4. CICLOSPORIN [Suspect]
     Indication: STEM CELL TRANSPLANT
     Dosage: 38.2 MG/KG
     Route: 048
  5. CICLOSPORIN [Suspect]
     Indication: PROPHYLAXIS AGAINST GRAFT VERSUS HOST DISEASE
  6. METHYLPREDNISOLONE [Concomitant]
     Indication: PROPHYLAXIS AGAINST GRAFT VERSUS HOST DISEASE
  7. NIFEDIPINE [Concomitant]
     Indication: HYPERTENSION
  8. AMLODIPINE [Concomitant]
     Indication: HYPERTENSION
     Dosage: 0.1 MG/KG
  9. BUSULFAN [Concomitant]
  10. FLUDARABINE [Concomitant]
  11. THYMOGLOBULINE [Concomitant]
  12. MYCOPHENOLATE MOFETIL [Concomitant]
     Indication: PROPHYLAXIS AGAINST GRAFT VERSUS HOST DISEASE

REACTIONS (7)
  - Post transplant distal limb syndrome [Recovered/Resolved]
  - Pain in extremity [Recovered/Resolved]
  - Bone marrow oedema [Recovered/Resolved]
  - Arthralgia [Recovered/Resolved]
  - Screaming [Recovered/Resolved]
  - Leukaemia recurrent [Unknown]
  - Hypertension [Unknown]
